FAERS Safety Report 12669996 (Version 1)
Quarter: 2016Q3

REPORT INFORMATION
  Report Type: Spontaneous
  Country: US (occurrence: US)
  Receive Date: 20160821
  Receipt Date: 20160821
  Transmission Date: 20161109
  Serious: Yes (Other)
  Sender: FDA-Public Use
  Company Number: US-DRREDDYS-USA/USA/16/0081053

PATIENT

DRUGS (1)
  1. SIROLIMUS. [Suspect]
     Active Substance: SIROLIMUS
     Indication: LYMPHANGIOLEIOMYOMATOSIS
     Route: 065

REACTIONS (5)
  - Pulmonary function test decreased [Unknown]
  - Product substitution issue [Unknown]
  - Lymphoma [Unknown]
  - Hepatic enzyme increased [Unknown]
  - Drug ineffective [Unknown]
